FAERS Safety Report 5845194-6 (Version None)
Quarter: 2008Q3

REPORT INFORMATION
  Report Type: 
  Country: None (occurrence: None)
  Receive Date: 20080812
  Receipt Date: 20080729
  Transmission Date: 20090109
  Serious: Yes (Other)
  Sender: FDA-Public Use
  Company Number: SPI200800391

PATIENT
  Age: 70 Year
  Sex: Female

DRUGS (1)
  1. AMITIZA [Suspect]

REACTIONS (1)
  - CONVULSION [None]
